FAERS Safety Report 4465817-6 (Version None)
Quarter: 2004Q3

REPORT INFORMATION
  Report Type: 
  Country: None (occurrence: None)
  Receive Date: 20040929
  Receipt Date: 20040929
  Transmission Date: 20050211
  Serious: Yes (Other)
  Sender: FDA-Public Use
  Company Number: None

PATIENT
  Age: 57 Year
  Sex: Male
  Weight: 91.4 kg

DRUGS (1)
  1. LORATADINE [Suspect]
     Indication: RHINITIS ALLERGIC
     Dosage: 10 MG QD PO
     Route: 048
     Dates: start: 20040825

REACTIONS (1)
  - SWOLLEN TONGUE [None]
